FAERS Safety Report 9410972 (Version 1)
Quarter: 2013Q3

REPORT INFORMATION
  Report Type: Spontaneous
  Country: US (occurrence: US)
  Receive Date: 20130719
  Receipt Date: 20130719
  Transmission Date: 20140515
  Serious: Yes (Other)
  Sender: FDA-Public Use
  Company Number: US-B.I. PHARMACEUTICALS,INC./RIDGEFIELD-2013-BI-20695BP

PATIENT
  Sex: Female

DRUGS (15)
  1. PRADAXA [Suspect]
     Indication: ATRIAL FIBRILLATION
  2. SPIRIVA [Suspect]
     Indication: PRODUCT USED FOR UNKNOWN INDICATION
  3. MIRAPEX [Suspect]
     Indication: PRODUCT USED FOR UNKNOWN INDICATION
  4. DILTIAZEM SR [Concomitant]
  5. VENTOLIN [Concomitant]
  6. SPIRONOLACTONE [Concomitant]
  7. CALCITRIOL [Concomitant]
  8. ADVAIR [Concomitant]
  9. TIOTROPIUM [Concomitant]
  10. POTASSIUM CHLORIDE [Concomitant]
  11. BUMETANIDE [Concomitant]
  12. TAMIVIR [Concomitant]
  13. VITAMIN D3 [Concomitant]
  14. LIPITOR [Concomitant]
  15. PREDNISONE [Concomitant]

REACTIONS (3)
  - Small intestine polyp [Unknown]
  - Nephropathy [Unknown]
  - General physical health deterioration [Unknown]
